FAERS Safety Report 6727451-4 (Version None)
Quarter: 2010Q2

REPORT INFORMATION
  Report Type: 
  Country: None (occurrence: None)
  Receive Date: 20100517
  Receipt Date: 20100510
  Transmission Date: 20101027
  Serious: Yes (Hospitalization)
  Sender: FDA-Public Use
  Company Number: US-SANOFI-AVENTIS-2010SA017055

PATIENT
  Age: 65 Year
  Sex: Female
  Weight: 79.4 kg

DRUGS (10)
  1. MULTAQ [Suspect]
     Indication: ATRIAL FIBRILLATION
     Route: 048
     Dates: start: 20090601, end: 20100201
  2. COUMADIN [Concomitant]
  3. ZAROXOLYN [Concomitant]
  4. SINGULAIR [Concomitant]
  5. FENOFIBRATE [Concomitant]
  6. VYTORIN [Concomitant]
     Dosage: 40/10
  7. LISINOPRIL [Concomitant]
  8. METOPROLOL TARTRATE [Concomitant]
  9. ASPIRIN [Concomitant]
  10. OMEPRAZOLE [Concomitant]

REACTIONS (13)
  - AGITATION [None]
  - ANXIETY [None]
  - CARDIAC FAILURE CONGESTIVE [None]
  - CHEST PAIN [None]
  - COUGH [None]
  - DYSPNOEA [None]
  - FATIGUE [None]
  - FLUID RETENTION [None]
  - GAIT DISTURBANCE [None]
  - OEDEMA PERIPHERAL [None]
  - RASH [None]
  - WEIGHT INCREASED [None]
  - WHEEZING [None]
